FAERS Safety Report 16953650 (Version 1)
Quarter: 2019Q4

REPORT INFORMATION
  Report Type: Spontaneous
  Country: US (occurrence: US)
  Receive Date: 20191023
  Receipt Date: 20191023
  Transmission Date: 20200122
  Serious: No
  Sender: FDA-Public Use
  Company Number: US-DERMIRA, INC.-US-2019DER000485

PATIENT
  Age: 44 Year
  Sex: Female
  Weight: 45.81 kg

DRUGS (6)
  1. TOPAMAX [Concomitant]
     Active Substance: TOPIRAMATE
     Indication: PRODUCT USED FOR UNKNOWN INDICATION
     Dosage: UNK
  2. BUPROPION. [Concomitant]
     Active Substance: BUPROPION
     Indication: PRODUCT USED FOR UNKNOWN INDICATION
     Dosage: UNK
  3. CLONAZEPAM. [Concomitant]
     Active Substance: CLONAZEPAM
     Indication: PRODUCT USED FOR UNKNOWN INDICATION
     Dosage: UNK
  4. BOTOX [Concomitant]
     Active Substance: ONABOTULINUMTOXINA
     Indication: MIGRAINE
     Dosage: UNK, EVERY THREE MONTHS
     Route: 058
  5. QBREXZA [Suspect]
     Active Substance: GLYCOPYRRONIUM TOSYLATE
     Indication: HYPERHIDROSIS
     Dosage: UNK
     Route: 061
     Dates: start: 20190912, end: 20190914
  6. DULOXETINE. [Concomitant]
     Active Substance: DULOXETINE
     Indication: PRODUCT USED FOR UNKNOWN INDICATION
     Dosage: UNK

REACTIONS (11)
  - Disorientation [Recovering/Resolving]
  - Photophobia [Recovering/Resolving]
  - Mydriasis [Not Recovered/Not Resolved]
  - Dry throat [Recovering/Resolving]
  - Intentional product misuse [Unknown]
  - Pharyngeal swelling [Recovering/Resolving]
  - Visual impairment [Not Recovered/Not Resolved]
  - Headache [Recovering/Resolving]
  - Constipation [Not Recovered/Not Resolved]
  - Dysuria [Recovering/Resolving]
  - Dry mouth [Recovering/Resolving]

NARRATIVE: CASE EVENT DATE: 20190913
